FAERS Safety Report 5891020-9 (Version None)
Quarter: 2008Q3

REPORT INFORMATION
  Report Type: 
  Country: None (occurrence: None)
  Receive Date: 20080922
  Receipt Date: 20080919
  Transmission Date: 20090109
  Serious: Yes (Other)
  Sender: FDA-Public Use
  Company Number: B0537668A

PATIENT
  Sex: Male

DRUGS (1)
  1. AMOXICILLIN [Suspect]
     Route: 065
     Dates: start: 20080101

REACTIONS (3)
  - MENINGITIS [None]
  - PALMAR ERYTHEMA [None]
  - SKIN EXFOLIATION [None]
